FAERS Safety Report 15759246 (Version 2)
Quarter: 2019Q1

REPORT INFORMATION
  Report Type: Spontaneous
  Country: TW (occurrence: TW)
  Receive Date: 20181226
  Receipt Date: 20190101
  Transmission Date: 20190417
  Serious: Yes (Hospitalization, Other)
  Sender: FDA-Public Use
  Company Number: TW-UCBSA-2018055083

PATIENT
  Age: 61 Year
  Sex: Female
  Weight: 66 kg

DRUGS (3)
  1. KEPPRA [Suspect]
     Active Substance: LEVETIRACETAM
     Indication: OFF LABEL USE
  2. CRAVIT [Suspect]
     Active Substance: LEVOFLOXACIN
     Indication: PNEUMONIA
     Dosage: 750 MG, ONCE DAILY (QD)
     Route: 041
     Dates: start: 20181119, end: 20181203
  3. KEPPRA [Suspect]
     Active Substance: LEVETIRACETAM
     Indication: RUPTURED CEREBRAL ANEURYSM
     Dosage: 500 MG, 2X/DAY (BID)
     Route: 048
     Dates: start: 20181104, end: 20181204

REACTIONS (6)
  - Urinary tract infection [Unknown]
  - Acinetobacter infection [Unknown]
  - Meningitis bacterial [Unknown]
  - Off label use [Unknown]
  - Stevens-Johnson syndrome [Recovering/Resolving]
  - Pneumonia [Unknown]

NARRATIVE: CASE EVENT DATE: 2018
